FAERS Safety Report 10084844 (Version 1)
Quarter: 2014Q2

REPORT INFORMATION
  Report Type: Report from Study
  Country: IT (occurrence: IT)
  Receive Date: 20140417
  Receipt Date: 20140417
  Transmission Date: 20141212
  Serious: Yes (Hospitalization)
  Sender: FDA-Public Use
  Company Number: IT-AMGEN-ITANI2014026637

PATIENT
  Age: 40 Year
  Sex: Female

DRUGS (8)
  1. PEGFILGRASTIM [Suspect]
     Indication: NON-HODGKIN^S LYMPHOMA
     Dosage: 6 MG, UNK
     Route: 058
     Dates: start: 20090724
  2. METHYLPREDNISOLONE                 /00049602/ [Concomitant]
     Indication: NON-HODGKIN^S LYMPHOMA
     Dosage: UNK
     Route: 042
     Dates: start: 20090721, end: 20090723
  3. ETOPOSIDE [Concomitant]
     Indication: NON-HODGKIN^S LYMPHOMA
     Dosage: UNK
     Route: 042
     Dates: start: 20090721, end: 20090723
  4. CARBOPLATIN [Concomitant]
     Dosage: 175 MG, UNK
     Route: 042
  5. CYTARABINE [Concomitant]
     Dosage: UNK
     Route: 042
     Dates: start: 20090721, end: 20090723
  6. ARA-C [Concomitant]
     Dosage: 350 MG, BID
  7. CISPLATIN [Concomitant]
     Dosage: 140 MG, UNK
  8. AUGMENTIN [Concomitant]
     Dosage: UNK UNK, Q12H
     Route: 048
     Dates: end: 20090727

REACTIONS (1)
  - Renal failure acute [Recovered/Resolved]
